FAERS Safety Report 24877685 (Version 1)
Quarter: 2025Q1

REPORT INFORMATION
  Report Type: Spontaneous
  Country: CN (occurrence: CN)
  Receive Date: 20250123
  Receipt Date: 20250123
  Transmission Date: 20250408
  Serious: Yes (Other)
  Sender: ACCORD
  Company Number: CN-Accord-465438

PATIENT
  Sex: Male

DRUGS (2)
  1. ETOPOSIDE [Suspect]
     Active Substance: ETOPOSIDE
     Indication: Neuroendocrine carcinoma of prostate
     Dates: start: 202202, end: 202203
  2. CISPLATIN [Suspect]
     Active Substance: CISPLATIN
     Indication: Neuroendocrine carcinoma of prostate
     Dates: start: 202202, end: 202203

REACTIONS (4)
  - Treatment failure [Unknown]
  - Renal impairment [Recovered/Resolved]
  - Gastrointestinal disorder [Unknown]
  - Blood creatinine increased [Recovered/Resolved]

NARRATIVE: CASE EVENT DATE: 20220101
